FAERS Safety Report 5135944-9 (Version None)
Quarter: 2006Q4

REPORT INFORMATION
  Report Type: 
  Country: None (occurrence: None)
  Receive Date: 20061020
  Receipt Date: 20061011
  Transmission Date: 20070319
  Serious: Yes (Other)
  Sender: FDA-Public Use
  Company Number: 2006125717

PATIENT
  Sex: Male

DRUGS (2)
  1. SERTRALINE [Suspect]
     Indication: ANXIETY
     Dosage: 50 MG (50 MG, 1 IN 1 D), ORAL
     Route: 048
  2. PROPRANOLOL [Concomitant]

REACTIONS (1)
  - PHAEOCHROMOCYTOMA [None]
